FAERS Safety Report 12241901 (Version 1)
Quarter: 2016Q2

REPORT INFORMATION
  Report Type: Spontaneous
  Country: US (occurrence: None)
  Receive Date: 20160405
  Receipt Date: 20160405
  Transmission Date: 20160815
  Serious: No
  Sender: FDA-Public Use
  Company Number: None

PATIENT
  Age: 65 Year
  Sex: Male
  Weight: 78.02 kg

DRUGS (3)
  1. AZITHROMYCIN ANHYDROUS. [Suspect]
     Active Substance: AZITHROMYCIN ANHYDROUS
     Indication: INFLUENZA
     Dosage: 2 PILLS ONE THEREAFTER BY MOUTH
     Route: 048
     Dates: start: 20160225, end: 20160225
  2. VITAMINS [Concomitant]
     Active Substance: VITAMINS
  3. SINUS RX [Concomitant]

REACTIONS (7)
  - Dyspnoea [None]
  - Dizziness [None]
  - Pyrexia [None]
  - Chromaturia [None]
  - Haematochezia [None]
  - Muscle spasms [None]
  - Chest discomfort [None]

NARRATIVE: CASE EVENT DATE: 20160225
